FAERS Safety Report 7508233-2 (Version None)
Quarter: 2011Q2

REPORT INFORMATION
  Report Type: 
  Country: None (occurrence: None)
  Receive Date: 20110527
  Receipt Date: 20110519
  Transmission Date: 20111010
  Serious: Yes (Hospitalization, Other)
  Sender: FDA-Public Use
  Company Number: JP-ASTELLAS-2011JP002621

PATIENT
  Sex: Male
  Weight: 63.8 kg

DRUGS (20)
  1. TACROLIMUS [Suspect]
     Dosage: 20 MG, UID/QD
     Route: 048
     Dates: start: 20100920, end: 20100926
  2. METHYLPREDNISOLONE [Concomitant]
     Dosage: 250 MG, UNKNOWN/D
     Route: 042
     Dates: start: 20100915, end: 20100915
  3. PREDNISOLONE [Concomitant]
     Dosage: 40 MG, UNKNOWN/D
     Route: 048
     Dates: start: 20100920, end: 20100921
  4. METHYLPREDNISOLONE [Concomitant]
     Dosage: 625 MG, UNKNOWN/D
     Route: 042
     Dates: start: 20100914, end: 20100914
  5. PREDNISOLONE [Concomitant]
     Dosage: 30 MG, UNKNOWN/D
     Route: 048
     Dates: start: 20100928
  6. MYCOPHENOLATE MOFETIL [Concomitant]
     Dosage: 1000 MG, UNKNOWN/D
     Route: 048
     Dates: start: 20100912, end: 20100921
  7. MYCOPHENOLATE MOFETIL [Concomitant]
     Dosage: 1000 MG, UNKNOWN/D
     Route: 048
     Dates: start: 20100928
  8. TACROLIMUS [Suspect]
     Indication: PROPHYLAXIS AGAINST TRANSPLANT REJECTION
     Dosage: 12 MG, UID/QD
     Route: 048
     Dates: start: 20100911, end: 20100913
  9. PROGRAF [Suspect]
     Dosage: 0.8 MG, UNKNOWN/D
     Route: 042
     Dates: start: 20100920
  10. TACROLIMUS [Suspect]
     Dosage: 12 MG, UID/QD
     Route: 048
  11. PROGRAF [Suspect]
     Dosage: 3.8 MG, UNKNOWN/D
     Route: 042
     Dates: start: 20100915, end: 20100915
  12. METHYLPREDNISOLONE [Concomitant]
     Dosage: 125 MG, UNKNOWN/D
     Route: 042
     Dates: start: 20100916, end: 20100916
  13. PREDNISOLONE [Concomitant]
     Dosage: 50 MG, UNKNOWN/D
     Route: 048
     Dates: start: 20100917, end: 20100919
  14. BASILIXIMAB [Concomitant]
     Dosage: 20 MG, UNKNOWN/D
     Route: 042
     Dates: start: 20100918, end: 20100918
  15. PROGRAF [Suspect]
     Indication: PROPHYLAXIS AGAINST TRANSPLANT REJECTION
     Dosage: 2.4 MG, UNKNOWN/D
     Route: 042
     Dates: start: 20100916, end: 20100916
  16. PREDNISOLONE [Concomitant]
     Dosage: 10 MG, UNKNOWN/D
     Route: 048
     Dates: start: 20100101, end: 20100101
  17. BASILIXIMAB [Concomitant]
     Dosage: 20 MG, UNKNOWN/D
     Route: 042
     Dates: start: 20100914, end: 20100914
  18. PROGRAF [Suspect]
     Dosage: 2.0 MG, UNKNOWN/D
     Route: 042
     Dates: start: 20100917, end: 20100919
  19. TACROLIMUS [Suspect]
     Dosage: 18 MG, UID/QD
     Route: 048
     Dates: start: 20100927
  20. PREDNISOLONE [Concomitant]
     Dosage: 5 MG, UNKNOWN/D
     Route: 048
     Dates: start: 20100101, end: 20110101

REACTIONS (3)
  - URINARY ANASTOMOTIC LEAK [None]
  - URINARY RETENTION [None]
  - RESTLESSNESS [None]
